FAERS Safety Report 5133153-0 (Version None)
Quarter: 2006Q4

REPORT INFORMATION
  Report Type: 
  Country: None (occurrence: None)
  Receive Date: 20061018
  Receipt Date: 20060914
  Transmission Date: 20070319
  Serious: Yes (Hospitalization)
  Sender: FDA-Public Use
  Company Number: 230551

PATIENT
  Age: 79 Year
  Sex: Female

DRUGS (5)
  1. AVASTIN [Suspect]
     Indication: COLORECTAL CANCER METASTATIC
     Dosage: 480 MG, Q3W, INTRAVENOUS
     Dates: start: 20060614
  2. CAPECITABINE (CAPECITABINE) [Suspect]
     Indication: COLORECTAL CANCER
     Dosage: 2000 MG/M2, Q3W, ORAL
     Route: 048
     Dates: start: 20060614
  3. MITOMYCIN [Suspect]
     Indication: COLORECTAL CANCER METASTATIC
     Dosage: 7 MG/M2, Q6W, INTRAVENOUS
     Route: 042
     Dates: start: 20060614
  4. CARTIA (ASPIRIN) (ASPIRIN) [Concomitant]
  5. BISOPROLOL FUMARATE [Concomitant]

REACTIONS (1)
  - GASTROINTESTINAL INFLAMMATION [None]
